FAERS Safety Report 6137819-5 (Version None)
Quarter: 2009Q1

REPORT INFORMATION
  Report Type: 
  Country: None (occurrence: None)
  Receive Date: 20090331
  Receipt Date: 20090320
  Transmission Date: 20090719
  Serious: Yes (Other)
  Sender: FDA-Public Use
  Company Number: US-AMGEN-QUU337131

PATIENT
  Sex: Female
  Weight: 83.5 kg

DRUGS (10)
  1. ENBREL [Suspect]
     Indication: RHEUMATOID ARTHRITIS
     Dates: start: 20051206
  2. ASPIRIN [Concomitant]
  3. PREDNISONE [Concomitant]
  4. PLAQUENIL [Concomitant]
  5. ZOLOFT [Concomitant]
  6. MULTI-VITAMINS [Concomitant]
  7. CALCIUM/VITAMINS NOS [Concomitant]
  8. ARAVA [Concomitant]
  9. VITAMIN B COMPLEX CAP [Concomitant]
  10. FLAX SEED OIL [Concomitant]

REACTIONS (11)
  - DEPRESSION [None]
  - EMPHYSEMA [None]
  - HIATUS HERNIA [None]
  - JOINT EFFUSION [None]
  - LEUKOPENIA [None]
  - MALAISE [None]
  - OSTEOARTHRITIS [None]
  - PERIPHERAL VASCULAR DISORDER [None]
  - RHEUMATOID ARTHRITIS [None]
  - SYNOVITIS [None]
  - ULCER [None]
